FAERS Safety Report 6698571-8 (Version None)
Quarter: 2010Q2

REPORT INFORMATION
  Report Type: 
  Country: None (occurrence: None)
  Receive Date: 20100427
  Receipt Date: 20100415
  Transmission Date: 20101027
  Serious: Yes (Other)
  Sender: FDA-Public Use
  Company Number: US-JNJFOC-20100406721

PATIENT
  Sex: Female
  Weight: 74.5 kg

DRUGS (12)
  1. DECITABINE [Suspect]
     Indication: COLORECTAL CANCER
     Route: 042
  2. PANITUMUMAB [Suspect]
     Indication: COLORECTAL CANCER
     Route: 042
  3. TYLENOL-500 [Suspect]
  4. TYLENOL-500 [Suspect]
     Indication: DRUG USE FOR UNKNOWN INDICATION
  5. LORAZEPAM [Concomitant]
  6. ONDANSETRON [Concomitant]
  7. PROTONIX [Concomitant]
  8. MAXALT [Concomitant]
  9. DARVOCET [Concomitant]
  10. VITAMIN D [Concomitant]
  11. MINOCYCLINE HCL [Concomitant]
  12. HYDROCORTISONE [Concomitant]
     Route: 061

REACTIONS (2)
  - ALANINE AMINOTRANSFERASE INCREASED [None]
  - ASPARTATE AMINOTRANSFERASE INCREASED [None]
